FAERS Safety Report 9473043 (Version 2)
Quarter: 2013Q3

REPORT INFORMATION
  Report Type: Spontaneous
  Country: US (occurrence: US)
  Receive Date: 20130823
  Receipt Date: 20130823
  Transmission Date: 20140515
  Serious: No
  Sender: FDA-Public Use
  Company Number: US-BRISTOL-MYERS SQUIBB COMPANY-17364597

PATIENT
  Age: 62 Year
  Sex: Male
  Weight: 40.36 kg

DRUGS (8)
  1. SPRYCEL [Suspect]
     Indication: CHRONIC MYELOID LEUKAEMIA
     Route: 048
     Dates: start: 20110603
  2. NITROSTAT [Concomitant]
  3. ATENOLOL [Concomitant]
  4. ALLOPURINOL [Concomitant]
  5. TRIAMTERENE + HCTZ [Concomitant]
  6. VITAMIN B12 [Concomitant]
  7. COZAAR [Concomitant]
  8. LOSARTAN [Concomitant]

REACTIONS (3)
  - Diarrhoea [Not Recovered/Not Resolved]
  - Alopecia [Not Recovered/Not Resolved]
  - Dyspepsia [Not Recovered/Not Resolved]
